FAERS Safety Report 7882313-4 (Version None)
Quarter: 2011Q4

REPORT INFORMATION
  Report Type: 
  Country: None (occurrence: None)
  Receive Date: 20111101
  Receipt Date: 20110613
  Transmission Date: 20120403
  Serious: No
  Sender: FDA-Public Use
  Company Number: US-AMGEN-USASP2011030358

PATIENT
  Age: 66 Year
  Sex: Female

DRUGS (5)
  1. ESTRACE [Concomitant]
  2. LORATADINE [Concomitant]
  3. SYMBICORT [Concomitant]
  4. ENBREL [Suspect]
     Indication: RHEUMATOID ARTHRITIS
     Dosage: 50 MG, QWK
     Dates: start: 20090101
  5. VITAMIN D [Concomitant]

REACTIONS (5)
  - SINUSITIS [None]
  - PAIN [None]
  - RHEUMATOID ARTHRITIS [None]
  - NASOPHARYNGITIS [None]
  - THERAPEUTIC RESPONSE DECREASED [None]
